FAERS Safety Report 8470280-4 (Version None)
Quarter: 2012Q2

REPORT INFORMATION
  Report Type: 
  Country: None (occurrence: None)
  Receive Date: 20120627
  Receipt Date: 20120620
  Transmission Date: 20120825
  Serious: Yes (Other)
  Sender: FDA-Public Use
  Company Number: BR-US-EMD SERONO, INC.-7140140

PATIENT
  Sex: Female

DRUGS (1)
  1. REBIF [Suspect]
     Indication: RELAPSING-REMITTING MULTIPLE SCLEROSIS
     Dates: start: 20090801, end: 20111010

REACTIONS (4)
  - AGGRESSION [None]
  - MULTIPLE SCLEROSIS RELAPSE [None]
  - MENTAL DISORDER [None]
  - PANIC DISORDER [None]
